FAERS Safety Report 17803438 (Version 1)
Quarter: 2020Q2

REPORT INFORMATION
  Report Type: Spontaneous
  Country: GB (occurrence: GB)
  Receive Date: 20200519
  Receipt Date: 20200519
  Transmission Date: 20200714
  Serious: Yes (Other)
  Sender: FDA-Public Use
  Company Number: GB-NOVOPROD-727880

PATIENT
  Age: 57 Year
  Sex: Female
  Weight: 104 kg

DRUGS (21)
  1. SPIRIVA [Concomitant]
     Active Substance: TIOTROPIUM BROMIDE MONOHYDRATE
     Dosage: 2 DF, QD, PUFFS
     Route: 065
     Dates: start: 20191107
  2. CYCLIZINE [Concomitant]
     Active Substance: CYCLIZINE
     Indication: MALAISE
     Dosage: 1 DF AS NECESSARY, MAX THR
     Route: 065
     Dates: start: 20200416
  3. AMOXICILLIN. [Concomitant]
     Active Substance: AMOXICILLIN
     Dosage: 3 DF, QD
     Route: 065
     Dates: start: 20191107
  4. METFORMIN [Concomitant]
     Active Substance: METFORMIN HYDROCHLORIDE
     Dosage: 4 DF, QD
     Route: 065
     Dates: start: 20191107
  5. HYDROCORTISONE. [Concomitant]
     Active Substance: HYDROCORTISONE
     Dosage: APPLY MAX  TWICE DAILY TO AFFECTED AREAS OF SKIN
     Route: 065
     Dates: start: 20200416, end: 20200423
  6. PREDNISOLONE. [Concomitant]
     Active Substance: PREDNISOLONE
     Dosage: 6 DF, QD, IN THE MORNING FOR 7 DAYS
     Route: 065
     Dates: start: 20191107
  7. ISOPHANE INSULIN [Concomitant]
     Active Substance: INSULIN NOS
     Dosage: USE AS DIRECTED
     Route: 065
     Dates: start: 20191107
  8. BENDROFLUMETHIAZIDE [Concomitant]
     Active Substance: BENDROFLUMETHIAZIDE
     Dosage: 1 DF, QD, EACH MORNING
     Route: 065
     Dates: start: 20191107
  9. GABAPENTIN. [Concomitant]
     Active Substance: GABAPENTIN
     Dosage: TAKE ONE TABLET AT BREAKFAST AND LUNCHTIME AND
     Route: 065
     Dates: start: 20191107
  10. CANDESARTAN. [Concomitant]
     Active Substance: CANDESARTAN
     Dosage: 1 DF, QD
     Route: 065
     Dates: start: 20191107
  11. BUTEC [Concomitant]
     Active Substance: BUPRENORPHINE
     Dosage: 1 DF, Q, APPLY ON THE SAME DAY EAC
     Route: 065
     Dates: start: 20191107
  12. THIAMINE. [Concomitant]
     Active Substance: THIAMINE
     Dosage: 3 DF, QD
     Route: 065
     Dates: start: 20191107
  13. PRAVASTATIN. [Concomitant]
     Active Substance: PRAVASTATIN
     Dosage: 1 DF, QD, AT NIGHT
     Route: 065
     Dates: start: 20191107
  14. VITAMIN B [Concomitant]
     Active Substance: VITAMIN B
     Dosage: 3 DF, QD
     Route: 065
     Dates: start: 20191107
  15. SALBUTAMOL [Concomitant]
     Active Substance: ALBUTEROL
     Dosage: 2 DF AS NECESSARY
     Route: 055
     Dates: start: 20191107
  16. OZEMPIC [Suspect]
     Active Substance: SEMAGLUTIDE
     Indication: PRODUCT USED FOR UNKNOWN INDICATION
     Dosage: 1 QW, USE AS DIRECTED. 0.5MG/0.37ML SOLUTION FOR INJECTION 1.5ML
     Route: 058
     Dates: start: 20200219, end: 20200427
  17. ADCAL [Concomitant]
     Dosage: 2 DF, QD
     Route: 065
     Dates: start: 20191107
  18. CO-AMOXICLAV [Concomitant]
     Active Substance: AMOXICILLIN\CLAVULANATE POTASSIUM
     Dosage: 3 DF, QD
     Route: 065
     Dates: start: 20200420, end: 20200427
  19. FLUOXETINE [Concomitant]
     Active Substance: FLUOXETINE HYDROCHLORIDE
     Dosage: USE AS DIRECTED
     Route: 065
     Dates: start: 20191107
  20. FLUTICASONE. [Concomitant]
     Active Substance: FLUTICASONE
     Dosage: 4 DF, QD
     Route: 055
     Dates: start: 20191107
  21. OMEPRAZOLE. [Concomitant]
     Active Substance: OMEPRAZOLE
     Dosage: 1 DF, QD, AT LUNCHTIME
     Route: 065
     Dates: start: 20191107

REACTIONS (4)
  - Nausea [Recovered/Resolved]
  - Flatulence [Unknown]
  - Urticaria [Recovered/Resolved]
  - Dyspepsia [Unknown]

NARRATIVE: CASE EVENT DATE: 20200429
